FAERS Safety Report 14610146 (Version 1)
Quarter: 2018Q1

REPORT INFORMATION
  Report Type: Report from Study
  Country: DE (occurrence: DE)
  Receive Date: 20180307
  Receipt Date: 20180307
  Transmission Date: 20180509
  Serious: Yes (Hospitalization)
  Sender: FDA-Public Use
  Company Number: DE-TEVA-2018-DE-861579

PATIENT
  Age: 12 Year
  Sex: Female

DRUGS (4)
  1. CEFACLOR. [Suspect]
     Active Substance: CEFACLOR
     Indication: PRODUCT USED FOR UNKNOWN INDICATION
     Dosage: UNK
     Route: 048
     Dates: start: 201403
  2. OMNITROPE [Suspect]
     Active Substance: SOMATROPIN
     Dosage: .85 MILLIGRAM DAILY;
     Route: 065
     Dates: start: 20140313
  3. OMNITROPE [Suspect]
     Active Substance: SOMATROPIN
     Indication: GROWTH HORMONE DEFICIENCY
     Dosage: .85 MILLIGRAM DAILY;
     Route: 065
     Dates: start: 20130718
  4. OMNITROPE [Suspect]
     Active Substance: SOMATROPIN
     Dosage: .03 MILLILITRE PER KILOGRAM DAILY; 0.027 MG/KG (10 MG/1.5 ML),
     Route: 058

REACTIONS (2)
  - Hypersensitivity [Recovered/Resolved]
  - Hypothyroidism [Not Recovered/Not Resolved]

NARRATIVE: CASE EVENT DATE: 201403
